FAERS Safety Report 12202154 (Version 1)
Quarter: 2016Q1

REPORT INFORMATION
  Report Type: Spontaneous
  Country: IT (occurrence: IT)
  Receive Date: 20160322
  Receipt Date: 20160322
  Transmission Date: 20160526
  Serious: Yes (Hospitalization)
  Sender: FDA-Public Use
  Company Number: PHHY2016IT035064

PATIENT
  Age: 38 Year
  Sex: Female

DRUGS (2)
  1. LEXOTAN [Suspect]
     Active Substance: BROMAZEPAM
     Indication: PANIC ATTACK
     Dosage: 50 MG, ONCE/SINGLE
     Route: 048
     Dates: start: 20160109, end: 20160109
  2. PARACETAMOL [Suspect]
     Active Substance: ACETAMINOPHEN
     Indication: BACK PAIN
     Dosage: 8 G, ONCE/SINGLE
     Route: 048
     Dates: start: 20160109, end: 20160109

REACTIONS (2)
  - Sopor [Recovered/Resolved]
  - Psychomotor retardation [Recovered/Resolved]

NARRATIVE: CASE EVENT DATE: 20160109
